FAERS Safety Report 9120902 (Version 1)
Quarter: 2013Q1

REPORT INFORMATION
  Report Type: Spontaneous
  Country: AU (occurrence: AU)
  Receive Date: 20130226
  Receipt Date: 20130226
  Transmission Date: 20140127
  Serious: Yes (Other)
  Sender: FDA-Public Use
  Company Number: AU-ROCHE-1195319

PATIENT
  Sex: 0

DRUGS (11)
  1. HERCEPTIN [Suspect]
     Indication: PRODUCT USED FOR UNKNOWN INDICATION
     Route: 065
     Dates: start: 200406, end: 200409
  2. HERCEPTIN [Suspect]
     Route: 065
     Dates: start: 200409, end: 200711
  3. HERCEPTIN [Suspect]
     Route: 065
     Dates: start: 201011
  4. XELODA [Suspect]
     Indication: PRODUCT USED FOR UNKNOWN INDICATION
     Route: 065
     Dates: start: 200711, end: 201010
  5. LAPATINIB [Suspect]
     Indication: PRODUCT USED FOR UNKNOWN INDICATION
     Route: 065
     Dates: start: 200711, end: 201010
  6. DOCETAXEL [Suspect]
     Indication: PRODUCT USED FOR UNKNOWN INDICATION
     Route: 065
     Dates: start: 200406, end: 200709
  7. DOXORUBICINE [Concomitant]
  8. CYCLOPHOSPHAMIDE [Concomitant]
  9. METHOTREXATE [Concomitant]
  10. FLUOROURACIL [Concomitant]
  11. NAB-PACLITAXEL [Concomitant]
     Route: 065
     Dates: start: 201110, end: 201211

REACTIONS (1)
  - Disease progression [Unknown]
